FAERS Safety Report 26174325 (Version 1)
Quarter: 2025Q4

REPORT INFORMATION
  Report Type: Spontaneous
  Country: US (occurrence: US)
  Receive Date: 20251218
  Receipt Date: 20251218
  Transmission Date: 20260117
  Serious: No
  Sender: BEIGENE
  Company Number: US-BEONEMEDICINES-BGN-2025-021099

PATIENT
  Age: 71 Year
  Sex: Female

DRUGS (2)
  1. BRUKINSA [Suspect]
     Active Substance: ZANUBRUTINIB
     Indication: Chronic lymphocytic leukaemia
     Dosage: 320 MILLIGRAM, BID
     Dates: start: 20241120
  2. BRUKINSA [Suspect]
     Active Substance: ZANUBRUTINIB
     Dosage: 320 MILLIGRAM, BID
     Dates: start: 20241120

REACTIONS (5)
  - Decreased appetite [Unknown]
  - Asthenia [Unknown]
  - Influenza like illness [Unknown]
  - Quality of life decreased [Unknown]
  - Overdose [Unknown]

NARRATIVE: CASE EVENT DATE: 20241120
